FAERS Safety Report 7264045-9 (Version None)
Quarter: 2011Q1

REPORT INFORMATION
  Report Type: 
  Country: None (occurrence: None)
  Receive Date: 20110130
  Receipt Date: 20101229
  Transmission Date: 20110831
  Serious: No
  Sender: FDA-Public Use
  Company Number: US-ABBOTT-10P-163-0694517-00

PATIENT
  Age: 52 Year
  Sex: Female

DRUGS (9)
  1. MULTIVITAMIN [Concomitant]
     Indication: PRODUCT USED FOR UNKNOWN INDICATION
  2. HUMIRA [Suspect]
     Indication: COLITIS ULCERATIVE
     Dates: start: 20060901
  3. OMEPRAZINE [Concomitant]
     Indication: PRODUCT USED FOR UNKNOWN INDICATION
  4. TRAZODONE HCL [Concomitant]
     Indication: INSOMNIA
     Dosage: 2 OR 3  PILLS AT NIGHT
  5. TRAMADOL HCL [Concomitant]
     Indication: PAIN
     Dosage: 2-3 TIMES A DAY
  6. HUMIRA [Suspect]
     Indication: OSTEOARTHRITIS
  7. CALCIUM [Concomitant]
     Indication: PRODUCT USED FOR UNKNOWN INDICATION
  8. FLUOXETINE [Concomitant]
     Indication: PRODUCT USED FOR UNKNOWN INDICATION
  9. METAXALONE [Concomitant]
     Indication: PRODUCT USED FOR UNKNOWN INDICATION

REACTIONS (6)
  - INCORRECT DOSE ADMINISTERED [None]
  - ROAD TRAFFIC ACCIDENT [None]
  - OSTEOARTHRITIS [None]
  - DEVICE MALFUNCTION [None]
  - PAIN [None]
  - COLITIS ULCERATIVE [None]
